FAERS Safety Report 24143788 (Version 1)
Quarter: 2024Q3

REPORT INFORMATION
  Report Type: Report from Study
  Country: US (occurrence: US)
  Receive Date: 20240727
  Receipt Date: 20240727
  Transmission Date: 20241017
  Serious: Yes (Other)
  Sender: ABBVIE
  Company Number: US-ABBVIE-5853916

PATIENT
  Age: 71 Year
  Sex: Female

DRUGS (1)
  1. RINVOQ [Suspect]
     Active Substance: UPADACITINIB
     Indication: Rheumatoid arthritis
     Route: 048
     Dates: start: 20230915

REACTIONS (3)
  - Knee operation [Recovering/Resolving]
  - Sinusitis [Recovering/Resolving]
  - Fibromyalgia [Recovering/Resolving]

NARRATIVE: CASE EVENT DATE: 20240501
